FAERS Safety Report 6209711-9 (Version None)
Quarter: 2009Q2

REPORT INFORMATION
  Report Type: 
  Country: None (occurrence: None)
  Receive Date: 20090529
  Receipt Date: 20090529
  Transmission Date: 20091009
  Serious: No
  Sender: FDA-Public Use
  Company Number: None

PATIENT
  Sex: Female
  Weight: 111.5849 kg

DRUGS (1)
  1. REMICADE [Suspect]
     Indication: RHEUMATOID ARTHRITIS
     Dosage: 335 MG Q 8 WK IV
     Route: 042
     Dates: start: 20090527

REACTIONS (2)
  - INFUSION RELATED REACTION [None]
  - MUSCLE SPASMS [None]
